FAERS Safety Report 6944645-3 (Version None)
Quarter: 2010Q3

REPORT INFORMATION
  Report Type: 
  Country: None (occurrence: None)
  Receive Date: 20100827
  Receipt Date: 20100816
  Transmission Date: 20110219
  Serious: Yes (Hospitalization, Other)
  Sender: FDA-Public Use
  Company Number: PHHY2008NZ23304

PATIENT
  Sex: Male

DRUGS (2)
  1. GLEEVEC [Suspect]
     Indication: CHRONIC MYELOID LEUKAEMIA
     Dosage: 400 MG, UNK
     Dates: start: 20080701
  2. FORTISIP [Concomitant]

REACTIONS (8)
  - BONE PAIN [None]
  - FATIGUE [None]
  - GASTROENTERITIS [None]
  - LABORATORY TEST ABNORMAL [None]
  - LACRIMATION INCREASED [None]
  - NAUSEA [None]
  - RASH GENERALISED [None]
  - RECURRING SKIN BOILS [None]
